FAERS Safety Report 7029977-5 (Version None)
Quarter: 2010Q4

REPORT INFORMATION
  Report Type: 
  Country: None (occurrence: None)
  Receive Date: 20101006
  Receipt Date: 20100927
  Transmission Date: 20110411
  Serious: Yes (Death, Other)
  Sender: FDA-Public Use
  Company Number: US-PERRIGO-10US013402

PATIENT
  Age: 25 Year
  Sex: Female
  Weight: 68.027 kg

DRUGS (3)
  1. GUAIFENESIN 20 MG/ML TUSSIN CS 310 [Suspect]
     Indication: COUGH
     Dosage: UNK
     Route: 048
     Dates: start: 20100805
  2. DEXTROMETHORPHAN [Suspect]
     Dosage: UNK
     Route: 065
  3. MIGRAINE PAIN [Concomitant]
     Indication: HEADACHE
     Route: 048

REACTIONS (3)
  - HEADACHE [None]
  - MULTIPLE DRUG OVERDOSE [None]
  - RESPIRATORY ARREST [None]
